FAERS Safety Report 7309874 (Version 6)
Quarter: 2014Q4

REPORT INFORMATION
  Report Type: Spontaneous
  Country: JP (occurrence: JP)
  Receive Date: 20100309
  Receipt Date: 20141202
  Transmission Date: 20150529
  Serious: Yes (Hospitalization, Other)
  Sender: FDA-Public Use
  Company Number: PHHY2009JP34758

PATIENT
  Age: 45 Year
  Sex: Female

DRUGS (7)
  1. RENAGEL [Suspect]
     Active Substance: SEVELAMER HYDROCHLORIDE
     Indication: PROPHYLAXIS
     Dosage: 1500 MG, DAILY
     Route: 048
  2. GLIVEC [Suspect]
     Active Substance: IMATINIB MESYLATE
     Indication: CHRONIC MYELOID LEUKAEMIA
     Dosage: 300 MG, DAILY
     Route: 048
     Dates: start: 20081104, end: 20081201
  3. SEVELAMER HYDROCHLORIDE [Suspect]
     Active Substance: SEVELAMER HYDROCHLORIDE
     Indication: PROPHYLAXIS
     Dosage: 1300 MG, DAILY
     Route: 048
  4. CALCIUM CARBONATE. [Suspect]
     Active Substance: CALCIUM CARBONATE
     Indication: PROPHYLAXIS
     Dosage: 3000 MG, DAILY
     Route: 048
  5. MEDIPEACE [Suspect]
     Active Substance: ETIZOLAM
     Indication: PROPHYLAXIS
     Dosage: 0.5 MG, DAILY
     Route: 048
  6. TAKEPRON [Concomitant]
     Active Substance: LANSOPRAZOLE
     Indication: PROPHYLAXIS
     Dosage: 15 MG, UNK
     Route: 048
     Dates: start: 20081114
  7. GLIVEC [Suspect]
     Active Substance: IMATINIB MESYLATE
     Dosage: 200 MG, DAILY
     Route: 048
     Dates: start: 20081224

REACTIONS (10)
  - Drug ineffective [Recovered/Resolved]
  - Hyperkalaemia [Unknown]
  - Blood creatine phosphokinase increased [Unknown]
  - Mesenteric panniculitis [Unknown]
  - Colitis ischaemic [Recovering/Resolving]
  - Acute abdomen [Recovered/Resolved]
  - Rash [Recovered/Resolved]
  - Blood lactate dehydrogenase increased [Unknown]
  - Myalgia [Recovered/Resolved]
  - Haematochezia [Unknown]

NARRATIVE: CASE EVENT DATE: 20081105
